FAERS Safety Report 7564667-1 (Version None)
Quarter: 2011Q2

REPORT INFORMATION
  Report Type: 
  Country: None (occurrence: None)
  Receive Date: 20110622
  Receipt Date: 20100916
  Transmission Date: 20111010
  Serious: Yes (Other)
  Sender: FDA-Public Use
  Company Number: US-MYLANLABS-2010S1014666

PATIENT
  Age: 28 Year
  Sex: Male

DRUGS (6)
  1. HALDOL [Concomitant]
  2. CLOZAPINE [Suspect]
     Indication: SCHIZOPHRENIA, PARANOID TYPE
     Dates: end: 20100801
  3. CLOZAPINE [Suspect]
     Dates: end: 20100913
  4. CLOZAPINE [Suspect]
     Dates: start: 20100801
  5. ZOLOFT [Concomitant]
  6. MULTIVITAMIN WITH MINERALS [Concomitant]

REACTIONS (1)
  - GRANULOCYTOPENIA [None]
